FAERS Safety Report 16363361 (Version 1)
Quarter: 2019Q2

REPORT INFORMATION
  Report Type: Spontaneous
  Country: FR (occurrence: FR)
  Receive Date: 20190528
  Receipt Date: 20190528
  Transmission Date: 20190711
  Serious: Yes (Hospitalization)
  Sender: FDA-Public Use
  Company Number: FR-MYLANLABS-2019M1048750

PATIENT
  Age: 85 Year
  Sex: Male
  Weight: 90 kg

DRUGS (2)
  1. VANCOMYCIN [Suspect]
     Active Substance: VANCOMYCIN
     Indication: STREPTOCOCCAL INFECTION
     Dosage: 2.5 GRAM
     Route: 042
     Dates: start: 20150304, end: 20150308
  2. AMOXICILLINE PANPHARMA [Suspect]
     Active Substance: AMOXICILLIN
     Indication: STREPTOCOCCAL INFECTION
     Dosage: 3 GRAM, Q4D
     Route: 042
     Dates: start: 20150309, end: 20150314

REACTIONS (5)
  - Acute kidney injury [Recovered/Resolved]
  - Overdose [Unknown]
  - Anuria [Recovered/Resolved]
  - Crystalluria [Recovered/Resolved]
  - Haematuria [Recovered/Resolved]

NARRATIVE: CASE EVENT DATE: 20150312
